FAERS Safety Report 13154788 (Version 1)
Quarter: 2017Q1

REPORT INFORMATION
  Report Type: Report from Study
  Country: US (occurrence: US)
  Receive Date: 20170126
  Receipt Date: 20170126
  Transmission Date: 20170428
  Serious: Yes (Other)
  Sender: FDA-Public Use
  Company Number: US-BAYER-2017-012096

PATIENT
  Age: 47 Year
  Sex: Male

DRUGS (2)
  1. STIVARGA [Suspect]
     Active Substance: REGORAFENIB
     Indication: COLON CANCER
     Dosage: 160 MG, QD
     Route: 048
     Dates: start: 20170112
  2. STIVARGA [Suspect]
     Active Substance: REGORAFENIB
     Indication: HEPATIC CANCER

REACTIONS (7)
  - Dry skin [None]
  - Erythema [None]
  - Neuropathy peripheral [None]
  - Hyperhidrosis [None]
  - Vomiting [None]
  - Chills [None]
  - Headache [None]

NARRATIVE: CASE EVENT DATE: 20170112
